FAERS Safety Report 14310777 (Version 2)
Quarter: 2018Q1

REPORT INFORMATION
  Report Type: Spontaneous
  Country: US (occurrence: US)
  Receive Date: 20171220
  Receipt Date: 20180114
  Transmission Date: 20180509
  Serious: No
  Sender: FDA-Public Use
  Company Number: US-B.I. PHARMACEUTICALS,INC./RIDGEFIELD-2017-BI-066830

PATIENT
  Age: 64 Year
  Sex: Female

DRUGS (2)
  1. FLOVENT [Concomitant]
     Active Substance: FLUTICASONE PROPIONATE
     Indication: LUNG DISORDER
     Dosage: 1-2 PUFFS PRN;  FORMULATION: INHALATION SPRAY;
     Route: 055
     Dates: start: 20170101
  2. SPIRIVA [Suspect]
     Active Substance: TIOTROPIUM BROMIDE MONOHYDRATE
     Indication: LUNG DISORDER
     Dosage: 1 CAPSULE A DAY; FORM STRENGTH: 18 MCG; FORMU: CAPSULE? ACTION(S) TAKEN: DOSE NOT CHANGED
     Route: 055
     Dates: start: 20171213

REACTIONS (3)
  - Product physical issue [Unknown]
  - Drug ineffective [Not Recovered/Not Resolved]
  - Incorrect drug administration rate [Not Recovered/Not Resolved]

NARRATIVE: CASE EVENT DATE: 20171213
